FAERS Safety Report 23944145 (Version 1)
Quarter: 2024Q2

REPORT INFORMATION
  Report Type: Spontaneous
  Country: CA (occurrence: CA)
  Receive Date: 20240606
  Receipt Date: 20240606
  Transmission Date: 20240715
  Serious: Yes (Other)
  Sender: FDA-Public Use
  Company Number: CA-TEVA-VS-3204203

PATIENT
  Age: 45 Year

DRUGS (2)
  1. METHOTREXATE SODIUM [Suspect]
     Active Substance: METHOTREXATE SODIUM
     Indication: Sarcoidosis
     Route: 065
  2. PREDNISONE [Concomitant]
     Active Substance: PREDNISONE
     Indication: Product used for unknown indication
     Route: 065

REACTIONS (7)
  - Chronic kidney disease [Unknown]
  - Dyspnoea [Unknown]
  - Hilar lymphadenopathy [Unknown]
  - Dyspnoea [Unknown]
  - Abdominal lymphadenopathy [Unknown]
  - Abdominal pain [Unknown]
  - Arthritis [Unknown]
